FAERS Safety Report 19734906 (Version 1)
Quarter: 2021Q3

REPORT INFORMATION
  Report Type: Spontaneous
  Country: CN (occurrence: CN)
  Receive Date: 20210824
  Receipt Date: 20210824
  Transmission Date: 20211014
  Serious: Yes (Hospitalization, Other)
  Sender: FDA-Public Use
  Company Number: CN-SUN PHARMACEUTICAL INDUSTRIES LTD-2021R1-308802

PATIENT
  Age: 46 Year
  Sex: Female

DRUGS (5)
  1. HYDROXYCHLOROQUINE [Suspect]
     Active Substance: HYDROXYCHLOROQUINE
     Indication: SJOGREN^S SYNDROME
     Dosage: 200 MILLIGRAM, BID
     Route: 065
  2. IMMUNOGLOBULIN [Concomitant]
     Indication: IMMUNOMODULATORY THERAPY
  3. IMMUNOGLOBULIN [Concomitant]
     Indication: SJOGREN^S SYNDROME
     Dosage: .4 MILLIGRAM/KILOGRAM, DAILY
     Route: 065
  4. MYCOPHENOLATE MOFETIL. [Suspect]
     Active Substance: MYCOPHENOLATE MOFETIL
     Indication: SJOGREN^S SYNDROME
     Dosage: 1 GRAM, DAILY
     Route: 065
  5. METHYLPREDNISOLONE. [Suspect]
     Active Substance: METHYLPREDNISOLONE
     Indication: SJOGREN^S SYNDROME
     Dosage: 40 MILLIGRAM, DAILY
     Route: 065

REACTIONS (3)
  - Pneumonia cryptococcal [Recovering/Resolving]
  - Osseous cryptococcosis [Recovering/Resolving]
  - Condition aggravated [Unknown]

NARRATIVE: CASE EVENT DATE: 201503
